FAERS Safety Report 20983038 (Version 2)
Quarter: 2022Q3

REPORT INFORMATION
  Report Type: Spontaneous
  Country: CH (occurrence: CH)
  Receive Date: 20220620
  Receipt Date: 20220816
  Transmission Date: 20221026
  Serious: Yes (Other)
  Sender: FDA-Public Use
  Company Number: CH-NAPPMUNDI-GBR-2022-0098922

PATIENT
  Age: 77 Year
  Sex: Male

DRUGS (16)
  1. MORPHINE [Suspect]
     Active Substance: MORPHINE
     Indication: Product used for unknown indication
     Dosage: 10 MILLIGRAM, THRICE DAILY ON STAND BY, RARELY TAKEN, AND 15MG  1X/D BEFORE DRESSING.
     Route: 048
     Dates: start: 20210225
  2. MORPHINE [Suspect]
     Active Substance: MORPHINE
     Dosage: 15 MILLIGRAM, EVERY FOUR HOURS+ 15MG 1H BEFORE DRESSING REPLACEMENT
     Route: 048
     Dates: start: 20210225, end: 20210311
  3. MORPHINE [Suspect]
     Active Substance: MORPHINE
     Dosage: 10 MILLIGRAM, THRICE DAILY ON STAND BY
     Route: 048
     Dates: start: 20210221
  4. MORPHINE [Suspect]
     Active Substance: MORPHINE
     Dosage: 10 MILLIGRAM, EVERY 4 HOURS
     Route: 048
     Dates: start: 20210221, end: 20210225
  5. MORPHINE [Suspect]
     Active Substance: MORPHINE
     Dosage: 5 MILLIGRAM, THREE TIMES DAILY ON STAND BY
     Route: 048
     Dates: start: 20210216, end: 20210221
  6. MORPHINE [Suspect]
     Active Substance: MORPHINE
     Dosage: 5 MILLIGRAM, EVERY 4 HOURS
     Route: 048
     Dates: start: 20210216, end: 20210221
  7. FENTANYL [Suspect]
     Active Substance: FENTANYL
     Indication: Product used for unknown indication
     Dosage: SINGLE DOSE
     Dates: start: 20210215
  8. MOVICOL [Suspect]
     Active Substance: POLYETHYLENE GLYCOL 3350\POTASSIUM CHLORIDE\SODIUM BICARBONATE\SODIUM CHLORIDE
     Indication: Product used for unknown indication
     Dosage: UNK
     Dates: start: 20210219
  9. METOPROLOL SUCCINATE [Suspect]
     Active Substance: METOPROLOL SUCCINATE
     Indication: Product used for unknown indication
     Dosage: 12.5 MILLIGRAM, DAILY
     Dates: start: 20210321
  10. METOPROLOL SUCCINATE [Suspect]
     Active Substance: METOPROLOL SUCCINATE
     Dosage: 25 MILLIGRAM, DAILY
     Route: 065
     Dates: start: 20210215, end: 20210219
  11. DAFALGAN [Suspect]
     Active Substance: ACETAMINOPHEN
     Indication: Product used for unknown indication
     Dosage: 1 GRAM, FOUR TIMES DAILY
     Dates: start: 20210215, end: 20210311
  12. SODIUM PICOSULFATE [Suspect]
     Active Substance: SODIUM PICOSULFATE
     Indication: Product used for unknown indication
     Dosage: UNK
     Dates: start: 20210218
  13. FIG FRUIT OIL\SORBITOL [Suspect]
     Active Substance: FIG FRUIT OIL\SORBITOL
     Indication: Product used for unknown indication
     Dosage: UNK
     Dates: start: 20210219
  14. ATORVASTATIN [Suspect]
     Active Substance: ATORVASTATIN
     Indication: Product used for unknown indication
     Dosage: 40 MILLIGRAM, DAILY
     Dates: end: 20210311
  15. AMLODIPINE [Suspect]
     Active Substance: AMLODIPINE BESYLATE
     Indication: Product used for unknown indication
     Dosage: 10 MILLIGRAM
  16. OLMESARTAN [Suspect]
     Active Substance: OLMESARTAN
     Indication: Product used for unknown indication
     Dosage: 40 MILLIGRAM, DAILY
     Dates: end: 20210315

REACTIONS (4)
  - Mixed liver injury [Recovered/Resolved]
  - Bile duct stone [Recovered/Resolved]
  - Drug dependence [Unknown]
  - Expired product administered [Unknown]

NARRATIVE: CASE EVENT DATE: 20210311
